FAERS Safety Report 6676869-7 (Version None)
Quarter: 2010Q2

REPORT INFORMATION
  Report Type: 
  Country: None (occurrence: None)
  Receive Date: 20100412
  Receipt Date: 20100329
  Transmission Date: 20101027
  Serious: Yes (Other)
  Sender: FDA-Public Use
  Company Number: GB-MYLANLABS-2010S1005305

PATIENT
  Age: 65 Year
  Sex: Female

DRUGS (14)
  1. DOXAZOSIN [Suspect]
     Indication: DRUG USE FOR UNKNOWN INDICATION
     Route: 048
  2. ASPIRIN [Concomitant]
     Indication: DRUG USE FOR UNKNOWN INDICATION
  3. AZITHROMYCIN [Concomitant]
     Indication: DRUG USE FOR UNKNOWN INDICATION
  4. BENDROFLUMETHIAZIDE [Concomitant]
     Indication: DRUG USE FOR UNKNOWN INDICATION
  5. CANDESARTAN [Concomitant]
     Indication: DRUG USE FOR UNKNOWN INDICATION
  6. EZETIMIBE [Concomitant]
     Indication: DRUG USE FOR UNKNOWN INDICATION
  7. ANCOBON [Concomitant]
     Indication: DRUG USE FOR UNKNOWN INDICATION
     Route: 055
  8. IVABRADINE [Concomitant]
     Indication: DRUG USE FOR UNKNOWN INDICATION
  9. LAMOTRIGINE [Concomitant]
     Indication: DRUG USE FOR UNKNOWN INDICATION
  10. PILOCARPINE HYDROCHLORIDE [Concomitant]
     Indication: DRUG USE FOR UNKNOWN INDICATION
  11. ROSUVASTATIN [Concomitant]
     Indication: DRUG USE FOR UNKNOWN INDICATION
  12. SODIUM CHLORIDE [Concomitant]
     Indication: DRUG USE FOR UNKNOWN INDICATION
  13. TERBUTALINE SULFATE [Concomitant]
     Indication: DRUG USE FOR UNKNOWN INDICATION
     Route: 055
  14. TIOTROPIUM BROMIDE [Concomitant]
     Indication: DRUG USE FOR UNKNOWN INDICATION
     Route: 055

REACTIONS (1)
  - CONVULSION [None]
